FAERS Safety Report 15801173 (Version 3)
Quarter: 2019Q1

REPORT INFORMATION
  Report Type: Spontaneous
  Country: JP (occurrence: JP)
  Receive Date: 20190109
  Receipt Date: 20190130
  Transmission Date: 20190417
  Serious: Yes (Death, Hospitalization, Other)
  Sender: FDA-Public Use
  Company Number: JP-AMGEN-JPNSP2019002203

PATIENT
  Age: 61 Year
  Sex: Male
  Weight: 54.5 kg

DRUGS (6)
  1. TAKECAB [Suspect]
     Active Substance: VONOPRAZAN FUMURATE
     Indication: GASTROOESOPHAGEAL REFLUX DISEASE
     Dosage: 10 MG, UNK (10 MG)
     Route: 048
     Dates: start: 20170911
  2. GASMOTIN [Suspect]
     Active Substance: MOSAPRIDE CITRATE
     Indication: CHRONIC GASTRITIS
     Dosage: 5 MG, TID (5 MG, THREE TIMES A DAY)
     Route: 048
  3. PARSABIV [Suspect]
     Active Substance: ETELCALCETIDE HYDROCHLORIDE
     Indication: HYPERPARATHYROIDISM SECONDARY
     Dosage: 2.5 MG, 3 TIMES/WK (2.5 MG, THREE TIMES A WEEK)
     Route: 042
     Dates: start: 20180411
  4. PLAVIX [Suspect]
     Active Substance: CLOPIDOGREL BISULFATE
     Indication: LACUNAR INFARCTION
     Dosage: 75 MG, UNK (75 MG)
     Route: 048
     Dates: start: 20161216
  5. CEROCRAL [Suspect]
     Active Substance: IFENPRODIL
     Indication: LACUNAR INFARCTION
     Dosage: 20 MG, TID (20 MG, THREE TIMES A DAY)
     Route: 048
  6. OXAROL [Suspect]
     Active Substance: MAXACALCITOL
     Indication: PRODUCT USED FOR UNKNOWN INDICATION
     Dosage: 2.5 MUG, 3 TIMES/WK (2.5 UG, THREE TIMES A WEEK)
     Route: 042
     Dates: start: 20180704

REACTIONS (1)
  - Cerebral infarction [Fatal]

NARRATIVE: CASE EVENT DATE: 20181214
